FAERS Safety Report 22395568 (Version 3)
Quarter: 2023Q2

REPORT INFORMATION
  Report Type: Spontaneous
  Country: CA (occurrence: CA)
  Receive Date: 20230601
  Receipt Date: 20230615
  Transmission Date: 20230722
  Serious: Yes (Other)
  Sender: FDA-Public Use
  Company Number: None

PATIENT

DRUGS (13)
  1. HYDROMORPHONE HYDROCHLORIDE [Suspect]
     Active Substance: HYDROMORPHONE HYDROCHLORIDE
     Indication: Post-traumatic pain
     Dosage: 8 MILLIGRAM, Q8H(1 EVERY 8 HOURS)
     Route: 064
  2. HYDROMORPHONE HYDROCHLORIDE [Suspect]
     Active Substance: HYDROMORPHONE HYDROCHLORIDE
     Dosage: 8 MILLIGRAM, AS REQUIRED
     Route: 064
  3. HYDROMORPHONE [Suspect]
     Active Substance: HYDROMORPHONE
     Indication: Post-traumatic pain
     Dosage: 24 MILLIGRAM, TID(3 EVERY 1 DAYS)
     Route: 064
  4. AMITRIPTYLINE [Suspect]
     Active Substance: AMITRIPTYLINE
     Indication: Product used for unknown indication
     Dosage: 25 MILLIGRAM, DAILY(1 EVERY 1 DAYS)
     Route: 064
  5. AMITRIPTYLINE [Suspect]
     Active Substance: AMITRIPTYLINE
     Dosage: 25 MILLIGRAM
     Route: 064
  6. ENOXAPARIN [Suspect]
     Active Substance: ENOXAPARIN
     Indication: Product used for unknown indication
     Dosage: UNK
     Route: 064
  7. FENTANYL [Suspect]
     Active Substance: FENTANYL
     Indication: Post-traumatic pain
     Dosage: 100 MICROGRAM
     Route: 064
  8. FENTANYL [Suspect]
     Active Substance: FENTANYL
     Dosage: 100 MICROGRAM CYCLICAL
     Route: 064
  9. GRAVOL [Suspect]
     Active Substance: DIMENHYDRINATE
     Indication: Product used for unknown indication
     Dosage: UNK
     Route: 064
  10. LORAZEPAM [Suspect]
     Active Substance: LORAZEPAM
     Indication: Product used for unknown indication
     Dosage: 0.5 MILLIGRAM, DAILY(1 EVERY 1 DAYS)
     Route: 064
  11. ONDANSETRON [Suspect]
     Active Substance: ONDANSETRON
     Indication: Product used for unknown indication
     Dosage: UNK
     Route: 064
  12. PANTOPRAZOLE [Suspect]
     Active Substance: PANTOPRAZOLE
     Indication: Product used for unknown indication
     Dosage: UNK
     Route: 064
  13. PROCHLORPERAZINE [Suspect]
     Active Substance: PROCHLORPERAZINE
     Indication: Product used for unknown indication
     Dosage: UNK
     Route: 064

REACTIONS (2)
  - Premature baby [Recovered/Resolved]
  - Maternal exposure during pregnancy [Recovered/Resolved]
